FAERS Safety Report 9283051 (Version 1)
Quarter: 2013Q2

REPORT INFORMATION
  Report Type: Spontaneous
  Country: US (occurrence: US)
  Receive Date: 20130510
  Receipt Date: 20130510
  Transmission Date: 20140414
  Serious: No
  Sender: FDA-Public Use
  Company Number: US-GLAXOSMITHKLINE-A0975819A

PATIENT
  Age: 68 Year
  Sex: Female

DRUGS (6)
  1. TYKERB [Suspect]
     Indication: BREAST CANCER
     Dosage: 1250MG PER DAY
     Route: 048
     Dates: start: 20120415
  2. XELODA [Concomitant]
  3. PROTONIX [Concomitant]
  4. ZOLOFT [Concomitant]
  5. ZYRTEC [Concomitant]
  6. OXYBUTYN [Concomitant]

REACTIONS (4)
  - Diarrhoea [Recovered/Resolved]
  - Fatigue [Recovered/Resolved]
  - Decreased appetite [Recovered/Resolved]
  - Blood pressure decreased [Recovered/Resolved]
